FAERS Safety Report 8947898 (Version 1)
Quarter: 2012Q4

REPORT INFORMATION
  Report Type: 
  Country: US (occurrence: US)
  Receive Date: 20121204
  Receipt Date: 20121204
  Transmission Date: 20130627
  Serious: Yes (Congenital Anomaly, Other)
  Sender: FDA-Public Use
  Company Number: US-PFIZER INC-2012300421

PATIENT
  Sex: Male
  Weight: 3.6 kg

DRUGS (11)
  1. ZOLOFT [Suspect]
     Indication: DEPRESSION
     Dosage: 50 mg, every day
     Route: 064
     Dates: start: 20100720
  2. SERTRALINE [Concomitant]
     Dosage: 200 mg, 1x/day (100 mg tablets, two tablets at bed time)
     Route: 064
  3. VISTARIL [Concomitant]
     Indication: ITCHING
     Dosage: 25 mg, one to two capsules every 6 hours as needed
     Route: 064
  4. VALIUM [Concomitant]
     Dosage: 10 mg, 2x/day, as needed
     Route: 064
  5. ABILIFY [Concomitant]
     Dosage: 30 mg, 1x/day, at bed time
     Route: 064
  6. TEGRETOL [Concomitant]
     Dosage: 200 mg, UNK
     Route: 064
  7. WELLBUTRIN [Concomitant]
     Dosage: 300 mg, 1x/day
     Route: 064
  8. ZYPREXA [Concomitant]
     Dosage: 20 mg, UNK
     Route: 064
  9. LITHIUM [Concomitant]
     Dosage: 300 mg, UNK
     Route: 064
  10. ATENOLOL [Concomitant]
     Dosage: 25 mg, UNK
     Route: 064
  11. SEROQUEL [Concomitant]
     Dosage: 400 mg, UNK
     Route: 064

REACTIONS (6)
  - Maternal exposure timing unspecified [Unknown]
  - Ventricular septal defect [Unknown]
  - Hypoplastic left heart syndrome [Unknown]
  - Truncus arteriosus persistent [Unknown]
  - Mitral valve atresia [Unknown]
  - Aortic valve atresia [Unknown]
